FAERS Safety Report 6965153-X (Version None)
Quarter: 2010Q3

REPORT INFORMATION
  Report Type: 
  Country: None (occurrence: None)
  Receive Date: 20100903
  Receipt Date: 20100824
  Transmission Date: 20110219
  Serious: Yes (Disabling, Other)
  Sender: FDA-Public Use
  Company Number: US-PERRIGO-10US012473

PATIENT
  Sex: Female

DRUGS (2)
  1. SODIUM PHOSPHATE GINGER-LEMON SALINE LAXATIVE 660 MG/ML 556 [Suspect]
     Indication: BOWEL PREPARATION
     Dosage: 90 ML WITHIN 2 HOURS
     Route: 048
     Dates: start: 20080820, end: 20080820
  2. SODIUM PHOSPHATE GINGER-LEMON SALINE LAXATIVE 660 MG/ML 556 [Suspect]
     Dosage: 2 DOSES OF 45 ML
     Route: 048
     Dates: start: 20081217, end: 20081217

REACTIONS (7)
  - ACTIVITIES OF DAILY LIVING IMPAIRED [None]
  - ACUTE PHOSPHATE NEPHROPATHY [None]
  - ANGER [None]
  - EMOTIONAL DISTRESS [None]
  - PAIN [None]
  - RENAL FAILURE ACUTE [None]
  - RENAL FAILURE CHRONIC [None]
